FAERS Safety Report 7130331-6 (Version None)
Quarter: 2010Q4

REPORT INFORMATION
  Report Type: 
  Country: None (occurrence: None)
  Receive Date: 20101116
  Receipt Date: 20101104
  Transmission Date: 20110411
  Serious: Yes (Other)
  Sender: FDA-Public Use
  Company Number: 2010SP058688

PATIENT
  Age: 33 Year
  Sex: Female
  Weight: 62 kg

DRUGS (4)
  1. NUVARING [Suspect]
     Indication: CONTRACEPTION
     Dosage: VAG
     Route: 067
     Dates: start: 20100301, end: 20100919
  2. NUVARING [Suspect]
     Indication: HAEMORRHAGIC CYST
     Dosage: VAG
     Route: 067
     Dates: start: 20100301, end: 20100919
  3. NUVARING [Suspect]
     Indication: CONTRACEPTION
     Dosage: VAG
     Route: 067
     Dates: start: 20101026
  4. NUVARING [Suspect]
     Indication: HAEMORRHAGIC CYST
     Dosage: VAG
     Route: 067
     Dates: start: 20101026

REACTIONS (2)
  - HAEMORRHAGIC CYST [None]
  - INAPPROPRIATE SCHEDULE OF DRUG ADMINISTRATION [None]
